FAERS Safety Report 8322149-3 (Version None)
Quarter: 2012Q2

REPORT INFORMATION
  Report Type: 
  Country: None (occurrence: None)
  Receive Date: 20120430
  Receipt Date: 20120417
  Transmission Date: 20120825
  Serious: Yes (Death)
  Sender: FDA-Public Use
  Company Number: CH-ROCHE-1060955

PATIENT
  Age: 58 Year
  Sex: Female
  Weight: 77 kg

DRUGS (14)
  1. AMLODIPINE [Concomitant]
     Route: 048
  2. PRAVALOTIN [Concomitant]
     Route: 048
  3. HYDROCORTONE [Suspect]
     Indication: ADRENAL DISORDER
     Dates: end: 20120301
  4. REPAGLINIDE [Concomitant]
     Route: 048
     Dates: end: 20120302
  5. COZAAR [Concomitant]
     Route: 048
  6. AURORIX [Concomitant]
  7. BILOL [Concomitant]
     Route: 048
  8. PANTOPRAZOLE [Concomitant]
     Route: 048
  9. MABTHERA [Suspect]
     Route: 041
     Dates: start: 20110921, end: 20111005
  10. ONGLYZA [Concomitant]
     Route: 048
     Dates: end: 20120302
  11. IBUPROFEN [Concomitant]
     Dosage: 1 PER 1 AS NECESSARY
     Route: 048
  12. MABTHERA [Suspect]
     Indication: RHEUMATOID ARTHRITIS
     Route: 041
     Dates: start: 20110518, end: 20110601
  13. CALCIMAGON-D3 [Concomitant]
     Route: 048
  14. ASPIRIN [Concomitant]

REACTIONS (6)
  - SEPSIS [None]
  - CIRCULATORY COLLAPSE [None]
  - ADRENAL INSUFFICIENCY [None]
  - DIABETES MELLITUS [None]
  - PNEUMONIA [None]
  - INAPPROPRIATE SCHEDULE OF DRUG ADMINISTRATION [None]
